FAERS Safety Report 21756421 (Version 1)
Quarter: 2022Q4

REPORT INFORMATION
  Report Type: Spontaneous
  Country: US (occurrence: US)
  Receive Date: 20221220
  Receipt Date: 20221220
  Transmission Date: 20230113
  Serious: No
  Sender: FDA-Public Use
  Company Number: US-ABBVIE-4202378

PATIENT
  Age: 83 Year
  Sex: Female

DRUGS (1)
  1. HUMIRA [Suspect]
     Active Substance: ADALIMUMAB
     Indication: Polymyalgia rheumatica
     Dosage: FORM STRENGTH 40 MILLIGRAM
     Route: 058
     Dates: start: 2020

REACTIONS (5)
  - Off label use [Not Recovered/Not Resolved]
  - Wrong technique in product usage process [Recovered/Resolved]
  - Visual impairment [Unknown]
  - Hypoacusis [Unknown]
  - Drug ineffective [Unknown]

NARRATIVE: CASE EVENT DATE: 20220901
